FAERS Safety Report 7772911-0 (Version None)
Quarter: 2011Q3

REPORT INFORMATION
  Report Type: 
  Country: None (occurrence: None)
  Receive Date: 20110922
  Receipt Date: 20100824
  Transmission Date: 20111222
  Serious: No
  Sender: FDA-Public Use
  Company Number: US-ASTRAZENECA-2008UW08846

PATIENT
  Age: 16995 Day
  Sex: Male
  Weight: 86.2 kg

DRUGS (15)
  1. TRAZODONE HYDROCHLORIDE [Concomitant]
     Dates: start: 20040501
  2. ZYPREXA [Concomitant]
     Indication: SCHIZOPHRENIA
     Dates: start: 19980101, end: 19990101
  3. SIMVASTATIN [Concomitant]
     Dates: start: 20050401
  4. DEPAKOTE [Concomitant]
     Dosage: 250-500MG
     Dates: start: 20021101
  5. SEROQUEL [Suspect]
     Dosage: 400 MG - 800 MG
     Route: 048
     Dates: start: 20061130, end: 20080514
  6. PROLIXIN [Concomitant]
     Dates: start: 20040501
  7. SEROQUEL [Suspect]
     Indication: BIPOLAR DISORDER
     Dosage: 400 MG - 800 MG
     Route: 048
     Dates: start: 20020227, end: 20080711
  8. SEROQUEL [Suspect]
     Indication: SCHIZOPHRENIA
     Dosage: 400 MG - 800 MG
     Route: 048
     Dates: start: 20020227, end: 20080711
  9. SEROQUEL [Suspect]
     Dosage: 400 MG - 800 MG
     Route: 048
     Dates: start: 20061130, end: 20080514
  10. ZYPREXA [Concomitant]
     Indication: BIPOLAR DISORDER
     Dates: start: 19980101, end: 19990101
  11. HALDOL [Concomitant]
     Dates: start: 20021101
  12. STELAZINE [Concomitant]
     Dates: start: 19980501
  13. STELAZINE [Concomitant]
     Dates: start: 19830601
  14. THORAZINE [Concomitant]
     Dates: start: 19880501, end: 19900701
  15. COGENTIN [Concomitant]
     Dates: start: 20040501

REACTIONS (7)
  - OBESITY [None]
  - CARDIAC DISORDER [None]
  - BLOOD CHOLESTEROL INCREASED [None]
  - DIABETIC COMPLICATION [None]
  - HYPERLIPIDAEMIA [None]
  - ADVERSE DRUG REACTION [None]
  - TYPE 2 DIABETES MELLITUS [None]
